FAERS Safety Report 6912428-6 (Version None)
Quarter: 2010Q3

REPORT INFORMATION
  Report Type: 
  Country: None (occurrence: None)
  Receive Date: 20100806
  Receipt Date: 20080616
  Transmission Date: 20110219
  Serious: No
  Sender: FDA-Public Use
  Company Number: US-PFIZER INC-2008043948

PATIENT
  Sex: Male
  Weight: 101.36 kg

DRUGS (13)
  1. GLIPIZIDE [Suspect]
     Indication: TYPE 2 DIABETES MELLITUS
     Route: 048
  2. VITAMIN TAB [Concomitant]
  3. TOPROL-XL [Concomitant]
  4. PRINIVIL [Concomitant]
  5. PLENDIL [Concomitant]
  6. ARIXTRA [Concomitant]
  7. POTASSIUM CHLORIDE [Concomitant]
  8. LASIX [Concomitant]
  9. LOVASTATIN [Concomitant]
  10. ALLOPURINOL [Concomitant]
  11. CALCIUM CARBONATE [Concomitant]
  12. VITAMIN D [Concomitant]
  13. FOLIC ACID [Concomitant]

REACTIONS (1)
  - BLOOD GLUCOSE INCREASED [None]
